FAERS Safety Report 10098133 (Version 1)
Quarter: 2014Q2

REPORT INFORMATION
  Report Type: Spontaneous
  Country: GB (occurrence: None)
  Receive Date: 20140421
  Receipt Date: 20140421
  Transmission Date: 20141212
  Serious: Yes (Other)
  Sender: FDA-Public Use
  Company Number: AUR-APL-2014-04574

PATIENT
  Age: 76 Year
  Sex: Female
  Weight: 68.04 kg

DRUGS (7)
  1. SIMVASTATIN [Suspect]
     Indication: PRODUCT USED FOR UNKNOWN INDICATION
     Dates: start: 2009
  2. CANDESARTAN [Concomitant]
  3. CHLORPHENAMINE [Concomitant]
  4. FELODIPINE [Concomitant]
  5. HYDROCORTISONE [Concomitant]
  6. LEVOTHYROXINE [Concomitant]
  7. LISINOPRIL [Concomitant]

REACTIONS (2)
  - Hypersensitivity [None]
  - Dysphagia [None]
